FAERS Safety Report 14347741 (Version 8)
Quarter: 2019Q1

REPORT INFORMATION
  Report Type: Report from Study
  Country: IT (occurrence: IT)
  Receive Date: 20180103
  Receipt Date: 20190103
  Transmission Date: 20190417
  Serious: Yes (Other)
  Sender: FDA-Public Use
  Company Number: IT-PFIZER INC-2016202048

PATIENT
  Age: 71 Year
  Sex: Female

DRUGS (10)
  1. IRINOTECAN HCL [Suspect]
     Active Substance: IRINOTECAN HYDROCHLORIDE
     Dosage: 695.4 MG, UNK
     Route: 041
     Dates: start: 20160125, end: 20160125
  2. FLUOROURACIL. [Suspect]
     Active Substance: FLUOROURACIL
     Indication: COLORECTAL CANCER METASTATIC
     Dosage: 4868 MG DAILY; 4868 MG, TOTAL ; IN TOTAL
     Route: 041
     Dates: start: 20160125, end: 20160125
  3. AFLIBERCEPT [Suspect]
     Active Substance: AFLIBERCEPT
     Dosage: 260 MG DAILY; 260 MG, TOTAL ; IN TOTAL
     Route: 041
     Dates: start: 20160223, end: 20160223
  4. RACECADOTRIL [Concomitant]
     Active Substance: RACECADOTRIL
     Dosage: UNK
     Dates: start: 20160210, end: 20160212
  5. IRINOTECAN HCL [Suspect]
     Active Substance: IRINOTECAN HYDROCHLORIDE
     Indication: COLORECTAL CANCER METASTATIC
     Dosage: 312.9 MG, TOTAL
     Route: 041
     Dates: start: 20160125, end: 20160125
  6. AFLIBERCEPT [Suspect]
     Active Substance: AFLIBERCEPT
     Indication: COLORECTAL CANCER METASTATIC
     Dosage: 260 MG, TOTAL
     Route: 041
     Dates: start: 20160125, end: 20160125
  7. IRINOTECAN HCL [Suspect]
     Active Substance: IRINOTECAN HYDROCHLORIDE
     Dosage: 312.9 MG, TOTAL
     Route: 041
     Dates: start: 20160223, end: 20160223
  8. LEUCOVORIN /00566701/ [Suspect]
     Active Substance: LEUCOVORIN
     Indication: COLORECTAL CANCER METASTATIC
     Dosage: 695.4 MG, TOTAL
     Route: 041
     Dates: start: 20160125, end: 20160125
  9. FLUOROURACIL. [Suspect]
     Active Substance: FLUOROURACIL
     Dosage: 4868 MG DAILY; 4868 MG, TOTAL ; IN TOTAL
     Route: 041
     Dates: start: 20160223, end: 20160223
  10. LEUCOVORIN /00566701/ [Suspect]
     Active Substance: LEUCOVORIN
     Dosage: 695.4 MG, TOTAL
     Route: 041
     Dates: start: 20160223, end: 20160223

REACTIONS (6)
  - Peripheral sensory neuropathy [Recovered/Resolved]
  - Diarrhoea [Recovered/Resolved]
  - Anaemia [Unknown]
  - Abdominal pain [Recovered/Resolved]
  - Dysgeusia [Recovered/Resolved]
  - Asthenia [Unknown]

NARRATIVE: CASE EVENT DATE: 20160307
